FAERS Safety Report 10515205 (Version 2)
Quarter: 2014Q4

REPORT INFORMATION
  Report Type: Spontaneous
  Country: US (occurrence: US)
  Receive Date: 20141014
  Receipt Date: 20141014
  Transmission Date: 20150528
  Serious: Yes (Hospitalization)
  Sender: FDA-Public Use
  Company Number: US-UNITED THERAPEUTICS-UNT-2014-007298

PATIENT
  Age: 47 Year
  Sex: Male
  Weight: 82.99 kg

DRUGS (3)
  1. LETAIRIS [Concomitant]
     Active Substance: AMBRISENTAN
     Indication: PRODUCT USED FOR UNKNOWN INDICATION
  2. REMODULIN [Suspect]
     Active Substance: TREPROSTINIL
     Dosage: 0.098 ?G/KG, CONTINUING
     Route: 041
     Dates: start: 20080812
  3. REMODULIN [Suspect]
     Active Substance: TREPROSTINIL
     Indication: COR PULMONALE CHRONIC
     Dosage: 0.090 ?G/KG/MIN, CONTINUING
     Route: 041
     Dates: start: 20080715

REACTIONS (4)
  - Device leakage [Unknown]
  - Injection site haemorrhage [Unknown]
  - Drug dose omission [Unknown]
  - Medical device complication [Unknown]

NARRATIVE: CASE EVENT DATE: 20140908
